FAERS Safety Report 15692100 (Version 4)
Quarter: 2020Q1

REPORT INFORMATION
  Report Type: Spontaneous
  Country: US (occurrence: US)
  Receive Date: 20181205
  Receipt Date: 20200323
  Transmission Date: 20200409
  Serious: Yes (Other)
  Sender: FDA-Public Use
  Company Number: PHEH2018US051182

PATIENT
  Sex: Female

DRUGS (1)
  1. TASIGNA [Suspect]
     Active Substance: NILOTINIB
     Indication: CHRONIC MYELOID LEUKAEMIA
     Dosage: 300 MG, BID
     Route: 048
     Dates: start: 2010, end: 2017

REACTIONS (25)
  - Renal failure [Unknown]
  - Sleep apnoea syndrome [Not Recovered/Not Resolved]
  - Iron deficiency anaemia [Unknown]
  - Chest pain [Not Recovered/Not Resolved]
  - Cardiovascular disorder [Unknown]
  - Type 2 diabetes mellitus [Unknown]
  - Gastrointestinal toxicity [Unknown]
  - Chronic obstructive pulmonary disease [Not Recovered/Not Resolved]
  - Type V hyperlipidaemia [Unknown]
  - Myocardial infarction [Unknown]
  - Essential hypertension [Unknown]
  - Insomnia [Not Recovered/Not Resolved]
  - Angina pectoris [Unknown]
  - Injury [Unknown]
  - Anxiety [Unknown]
  - Epigastric discomfort [Unknown]
  - Snoring [Not Recovered/Not Resolved]
  - Hypercholesterolaemia [Unknown]
  - Hyperlipidaemia [Not Recovered/Not Resolved]
  - Coronary artery disease [Unknown]
  - Anaemia [Unknown]
  - Chronic kidney disease [Unknown]
  - Somnolence [Not Recovered/Not Resolved]
  - Restless legs syndrome [Not Recovered/Not Resolved]
  - Fatigue [Unknown]

NARRATIVE: CASE EVENT DATE: 2013
